FAERS Safety Report 7752778 (Version 3)
Quarter: 2013Q1

REPORT INFORMATION
  Report Type: Spontaneous
  Country: FR (occurrence: FR)
  Receive Date: 20110107
  Receipt Date: 20130110
  Transmission Date: 20140127
  Serious: Yes (Life-Threatening)
  Sender: FDA-Public Use
  Company Number: FR-JNJFOC-20110100168

PATIENT
  Age: 8 Month
  Sex: Male
  Weight: 6.4 kg

DRUGS (1)
  1. DUROGESIC [Suspect]
     Indication: ACCIDENTAL EXPOSURE TO PRODUCT
     Route: 002
     Dates: start: 20101019

REACTIONS (10)
  - Hypotonia [Recovered/Resolved]
  - Accidental exposure to product by child [Recovered/Resolved]
  - Somnolence [Recovered/Resolved]
  - Gaze palsy [Recovered/Resolved]
  - Miosis [Recovered/Resolved]
  - Hyperventilation [Recovered/Resolved]
  - Off label use [Recovered/Resolved]
  - Accidental exposure to product by child [Unknown]
  - Fall [Unknown]
  - Abdominal pain [Unknown]
